FAERS Safety Report 5154062-7 (Version None)
Quarter: 2006Q4

REPORT INFORMATION
  Report Type: 
  Country: None (occurrence: None)
  Receive Date: 20061120
  Receipt Date: 20061114
  Transmission Date: 20070319
  Serious: Yes (Other)
  Sender: FDA-Public Use
  Company Number: US-JNJFOC-20060904629

PATIENT
  Sex: Male
  Weight: 95.71 kg

DRUGS (11)
  1. REMICADE [Suspect]
     Route: 042
  2. REMICADE [Suspect]
     Route: 042
  3. REMICADE [Suspect]
     Indication: PSORIATIC ARTHROPATHY
     Route: 042
  4. ACCUPRIL [Concomitant]
     Indication: HYPERTENSION
     Dosage: DATES OF THERAPY ^1 YEAR PLUS^
  5. HYDROCHLOROTHIAZIDE [Concomitant]
     Indication: HYPERTENSION
     Dosage: DATES OF THERAPY ^1 YEAR PLUS^
  6. GLIPIZIDE [Concomitant]
     Indication: DIABETES MELLITUS
     Dosage: DATES OF THERAPY ^1 YEAR PLUS^
  7. METFORMIN [Concomitant]
     Indication: DIABETES MELLITUS
     Dosage: DATES OF THERAPY ^1 YEAR PLUS^
  8. TOPROL-XL [Concomitant]
     Indication: HYPERTENSION
     Dosage: DATES OF THERAPY ^1 YEAR PLUS^
  9. PREDNISONE TAB [Concomitant]
     Indication: PSORIATIC ARTHROPATHY
     Dosage: DATES OF THERAPY ^1 YEAR PLUS^
  10. MOBIC [Concomitant]
     Indication: PSORIATIC ARTHROPATHY
     Dosage: DATES OF THERAPY ^1 YEAR PLUS^
  11. GEMFIBROZIL [Concomitant]
     Indication: LIPIDS INCREASED
     Dosage: DATES OF THERAPY ^1 YEAR PLUS^

REACTIONS (10)
  - BLOOD PRESSURE INCREASED [None]
  - DIZZINESS [None]
  - DYSPNOEA [None]
  - FLUSHING [None]
  - GENERALISED ERYTHEMA [None]
  - HYPOAESTHESIA ORAL [None]
  - INFUSION RELATED REACTION [None]
  - JOINT SWELLING [None]
  - SWOLLEN TONGUE [None]
  - URTICARIA [None]
